FAERS Safety Report 8967734 (Version 2)
Quarter: 2013Q1

REPORT INFORMATION
  Report Type: Spontaneous
  Country: US (occurrence: None)
  Receive Date: 20121207
  Receipt Date: 20121221
  Transmission Date: 20140127
  Serious: Yes (Hospitalization, Other)
  Sender: FDA-Public Use
  Company Number: JPI-P-026669

PATIENT
  Age: 59 Year
  Sex: Female
  Weight: 78.93 kg

DRUGS (9)
  1. XYREM [Suspect]
     Indication: FIBROMYALGIA
     Dosage: UNKNOWN, ORAL
     Route: 048
     Dates: start: 20070125
  2. NEBIVOLOL HYDROCHLORIDE [Concomitant]
  3. AMLODIPINE [Concomitant]
  4. LISINOPRIL [Concomitant]
  5. CLONIDINE [Concomitant]
  6. ALPRAZOLAM [Concomitant]
  7. PENTOXIFYLLINE [Concomitant]
  8. PILOCARPINE HYDROCHLORIDE [Concomitant]
  9. ZOLPIDEM TARTRATE [Concomitant]

REACTIONS (9)
  - Anxiety [None]
  - Gastroenteritis viral [None]
  - Insomnia [None]
  - Sjogren^s syndrome [None]
  - Raynaud^s phenomenon [None]
  - Hyponatraemia [None]
  - Blood pressure increased [None]
  - Decreased appetite [None]
  - Urinary tract infection [None]
